FAERS Safety Report 23033021 (Version 4)
Quarter: 2023Q4

REPORT INFORMATION
  Report Type: Spontaneous
  Country: US (occurrence: US)
  Receive Date: 20231005
  Receipt Date: 20231116
  Transmission Date: 20240110
  Serious: No
  Sender: FDA-Public Use
  Company Number: US-PFIZER INC-202300298728

PATIENT
  Age: 5 Year
  Sex: Male
  Weight: 18.9 kg

DRUGS (1)
  1. GENOTROPIN [Suspect]
     Active Substance: SOMATROPIN
     Indication: Short stature
     Dosage: 0.8 MG, DAILY
     Route: 058
     Dates: start: 20230807

REACTIONS (2)
  - Incorrect dose administered by device [Unknown]
  - Device information output issue [Unknown]
